FAERS Safety Report 9921796 (Version 2)
Quarter: 2014Q1

REPORT INFORMATION
  Report Type: Spontaneous
  Country: JP (occurrence: JP)
  Receive Date: 20140225
  Receipt Date: 20140225
  Transmission Date: 20141002
  Serious: Yes (Hospitalization)
  Sender: FDA-Public Use
  Company Number: JP-PFIZER INC-2014024790

PATIENT
  Age: 20 Year
  Sex: Female

DRUGS (3)
  1. JZOLOFT [Suspect]
     Indication: DEPRESSION
     Dosage: 50 MG, 3X/DAY
     Route: 048
     Dates: start: 20140124
  2. TEGRETOL [Concomitant]
     Dosage: UNK
     Route: 048
  3. RISPERIDONE [Concomitant]
     Dosage: UNK
     Route: 048

REACTIONS (1)
  - Post-traumatic stress disorder [Recovering/Resolving]
